FAERS Safety Report 8073281-3 (Version None)
Quarter: 2012Q1

REPORT INFORMATION
  Report Type: 
  Country: None (occurrence: None)
  Receive Date: 20120126
  Receipt Date: 20120118
  Transmission Date: 20120608
  Serious: Yes (Hospitalization)
  Sender: FDA-Public Use
  Company Number: JP-ASTRAZENECA-2011SE53125

PATIENT
  Sex: Male
  Weight: 56 kg

DRUGS (11)
  1. ASPIRIN [Concomitant]
     Indication: ANGINA UNSTABLE
     Route: 048
     Dates: start: 20100427
  2. CRESTOR [Suspect]
     Indication: LIPID METABOLISM DISORDER
     Route: 048
     Dates: start: 20110706, end: 20110804
  3. ALLOPURINOL [Suspect]
     Indication: HYPERURICAEMIA
     Route: 048
     Dates: end: 20110804
  4. PLAVIX [Suspect]
     Indication: ANGINA UNSTABLE
     Route: 048
     Dates: start: 20110427, end: 20110804
  5. DEPAS [Suspect]
     Indication: INSOMNIA
     Route: 048
     Dates: end: 20110804
  6. URIEF [Concomitant]
     Indication: BENIGN PROSTATIC HYPERPLASIA
     Route: 048
     Dates: start: 20101005
  7. CERNILTON [Concomitant]
     Indication: BENIGN PROSTATIC HYPERPLASIA
     Route: 048
     Dates: start: 20110719
  8. CANDESARTAN CILEXETIL [Suspect]
     Indication: HYPERTENSION
     Route: 048
     Dates: start: 20110406, end: 20110804
  9. CANDESARTAN CILEXETIL [Suspect]
     Route: 048
     Dates: start: 20110827, end: 20110901
  10. OMEPRAZOLE [Suspect]
     Indication: GASTROOESOPHAGEAL REFLUX DISEASE
     Route: 048
     Dates: start: 20110406, end: 20110804
  11. ADALAT [Concomitant]
     Indication: HYPERTENSION
     Route: 048
     Dates: end: 20110706

REACTIONS (1)
  - INTERSTITIAL LUNG DISEASE [None]
